FAERS Safety Report 5903431-3 (Version None)
Quarter: 2008Q3

REPORT INFORMATION
  Report Type: 
  Country: None (occurrence: None)
  Receive Date: 20080930
  Receipt Date: 20080925
  Transmission Date: 20090109
  Serious: Yes (Other)
  Sender: FDA-Public Use
  Company Number: US-BAYER-200814104NA

PATIENT
  Age: 65 Year
  Sex: Male

DRUGS (3)
  1. NEXAVAR [Suspect]
     Indication: RENAL CELL CARCINOMA
     Dosage: TOTAL DAILY DOSE: 800  MG  UNIT DOSE: 200 MG
     Route: 048
     Dates: start: 20080208
  2. LISINOPRIL [Concomitant]
     Indication: HYPERTENSION
     Dosage: TOTAL DAILY DOSE: 40 MG
     Route: 048
  3. NORVASC [Concomitant]
     Indication: HYPERTENSION
     Dosage: TOTAL DAILY DOSE: 10 MG
     Route: 048

REACTIONS (7)
  - COUGH [None]
  - DIVERTICULITIS [None]
  - HYPERTENSION [None]
  - OROPHARYNGEAL PAIN [None]
  - RHINORRHOEA [None]
  - SQUAMOUS CELL CARCINOMA [None]
  - UPPER RESPIRATORY TRACT INFECTION [None]
